FAERS Safety Report 5086089-8 (Version None)
Quarter: 2006Q3

REPORT INFORMATION
  Report Type: 
  Country: None (occurrence: None)
  Receive Date: 20060818
  Receipt Date: 20060807
  Transmission Date: 20061208
  Serious: Yes (Other)
  Sender: FDA-Public Use
  Company Number: 2006RR-03163

PATIENT
  Age: 6 Month
  Sex: Female
  Weight: 5.5 kg

DRUGS (7)
  1. ACYCLOVIR [Suspect]
     Indication: ANTIBIOTIC PROPHYLAXIS
     Dosage: 250 MG/M2, TID
  2. ACYCLOVIR [Suspect]
     Indication: ANTIBIOTIC PROPHYLAXIS
     Dosage: 250 MG/M2, TID
  3. NEORAL [Concomitant]
  4. TIARCILLIN-CLAVULANIC ACID [Concomitant]
  5. FLUCONAZOLE [Concomitant]
  6. FENTANYL [Concomitant]
  7. MIDAZOLAM HYDROCHLORIDE [Concomitant]

REACTIONS (8)
  - AGITATION [None]
  - CHOREOATHETOSIS [None]
  - COMA [None]
  - DRUG LEVEL ABOVE THERAPEUTIC [None]
  - DRUG LEVEL BELOW THERAPEUTIC [None]
  - ELECTROENCEPHALOGRAM ABNORMAL [None]
  - ENCEPHALOPATHY [None]
  - EYE MOVEMENT DISORDER [None]
